FAERS Safety Report 6073963-9 (Version None)
Quarter: 2009Q1

REPORT INFORMATION
  Report Type: 
  Country: None (occurrence: None)
  Receive Date: 20090211
  Receipt Date: 20090202
  Transmission Date: 20090719
  Serious: Yes (Disabling)
  Sender: FDA-Public Use
  Company Number: PHHY2009GB03770

PATIENT
  Age: 61 Year
  Sex: Male

DRUGS (1)
  1. DICLOFENAC [Suspect]
     Indication: OSTEOARTHRITIS
     Dosage: 50MG PER DAY
     Route: 048
     Dates: start: 20030310, end: 20090101

REACTIONS (4)
  - NEPHRITIS ALLERGIC [None]
  - NEPHROTIC SYNDROME [None]
  - PALATAL OEDEMA [None]
  - TUBULOINTERSTITIAL NEPHRITIS [None]
